FAERS Safety Report 18590088 (Version 1)
Quarter: 2020Q4

REPORT INFORMATION
  Report Type: Spontaneous
  Country: US (occurrence: US)
  Receive Date: 20201208
  Receipt Date: 20201208
  Transmission Date: 20210114
  Serious: Yes (Disabling)
  Sender: FDA-Public Use
  Company Number: None

PATIENT
  Age: 6 Year
  Sex: Female
  Weight: 22.5 kg

DRUGS (1)
  1. MIRALAX [Suspect]
     Active Substance: POLYETHYLENE GLYCOL 3350
     Indication: CONSTIPATION
     Dosage: ?          QUANTITY:7 GRAMS;?
     Route: 048
     Dates: start: 20180801, end: 20201204

REACTIONS (3)
  - Anxiety [None]
  - Panic attack [None]
  - Hallucination, auditory [None]

NARRATIVE: CASE EVENT DATE: 20201201
